FAERS Safety Report 12451556 (Version 6)
Quarter: 2017Q3

REPORT INFORMATION
  Report Type: Report from Study
  Country: JP (occurrence: JP)
  Receive Date: 20160609
  Receipt Date: 20170921
  Transmission Date: 20171127
  Serious: Yes (Hospitalization, Other)
  Sender: FDA-Public Use
  Company Number: JP-INCYTE CORPORATION-2015IN005897

PATIENT

DRUGS (7)
  1. RED BLOOD CELLS-LEUKOCYTES REDUCED [Concomitant]
     Dosage: 2 IU, QD
     Route: 041
     Dates: start: 20160502, end: 20160502
  2. JAKAVI [Suspect]
     Active Substance: RUXOLITINIB
     Dosage: 5 MG, BID
     Route: 048
     Dates: start: 20150806
  3. JAKAVI [Suspect]
     Active Substance: RUXOLITINIB
     Indication: MYELOFIBROSIS
     Dosage: 5 MG, BID
     Route: 048
     Dates: start: 20150409, end: 20150513
  4. JAKAVI [Suspect]
     Active Substance: RUXOLITINIB
     Dosage: 5 MG, BID
     Route: 048
     Dates: start: 20150709, end: 20150722
  5. RED BLOOD CELLS-LEUKOCYTES REDUCED [Concomitant]
     Indication: ANAEMIA
     Dosage: 2 IU, QD
     Route: 041
     Dates: start: 20150430, end: 20150430
  6. RED BLOOD CELLS-LEUKOCYTES REDUCED [Concomitant]
     Dosage: 2 IU, QD
     Route: 041
     Dates: start: 20150528, end: 20150528
  7. JAKAVI [Suspect]
     Active Substance: RUXOLITINIB
     Dosage: 10 MG, BID
     Route: 048
     Dates: start: 20150514, end: 20150708

REACTIONS (22)
  - Ascites [Unknown]
  - Hepatomegaly [Not Recovered/Not Resolved]
  - Aspartate aminotransferase increased [Unknown]
  - Renal impairment [Recovering/Resolving]
  - Uterine leiomyoma [Unknown]
  - Nephrogenic anaemia [Unknown]
  - Platelet count decreased [Unknown]
  - Weight increased [Unknown]
  - Limb discomfort [Recovering/Resolving]
  - Ankle fracture [Recovered/Resolved]
  - Oral candidiasis [Recovering/Resolving]
  - Abdominal pain [Not Recovered/Not Resolved]
  - Varices oesophageal [Recovered/Resolved]
  - Concomitant disease aggravated [Recovered/Resolved]
  - Gallbladder oedema [Not Recovered/Not Resolved]
  - Lymphadenopathy [Unknown]
  - Bile duct stone [Not Recovered/Not Resolved]
  - Anaemia [Recovering/Resolving]
  - Cholelithiasis [Not Recovered/Not Resolved]
  - Rash [Unknown]
  - Hyperkalaemia [Recovered/Resolved]
  - Gastrointestinal oedema [Unknown]

NARRATIVE: CASE EVENT DATE: 20150430
